FAERS Safety Report 5386468-5 (Version None)
Quarter: 2007Q3

REPORT INFORMATION
  Report Type: 
  Country: None (occurrence: None)
  Receive Date: 20070710
  Receipt Date: 20070702
  Transmission Date: 20080115
  Serious: Yes (Death)
  Sender: FDA-Public Use
  Company Number: 163-21880-07070110

PATIENT
  Age: 79 Year
  Sex: Male
  Weight: 111.1313 kg

DRUGS (1)
  1. REVLIMID [Suspect]
     Indication: MYELODYSPLASTIC SYNDROME
     Dosage: 2.1429 MG, 3 IN 1 WK; ORAL
     Route: 048
     Dates: start: 20060217, end: 20070611

REACTIONS (1)
  - DISEASE PROGRESSION [None]
